FAERS Safety Report 5444711-8 (Version None)
Quarter: 2007Q3

REPORT INFORMATION
  Report Type: 
  Country: None (occurrence: None)
  Receive Date: 20070906
  Receipt Date: 20070213
  Transmission Date: 20080115
  Serious: No
  Sender: FDA-Public Use
  Company Number: A0639539A

PATIENT
  Age: 63 Year
  Sex: Female

DRUGS (4)
  1. REQUIP [Suspect]
     Indication: RESTLESS LEGS SYNDROME
     Dosage: 2MG PER DAY
     Route: 048
     Dates: start: 20070206
  2. PROZAC [Concomitant]
  3. VASOTEC [Concomitant]
  4. HYDROCHLOROTHIAZIDE [Concomitant]

REACTIONS (1)
  - HEADACHE [None]
